FAERS Safety Report 16907088 (Version 1)
Quarter: 2019Q4

REPORT INFORMATION
  Report Type: Report from Study
  Country: US (occurrence: US)
  Receive Date: 20191011
  Receipt Date: 20191011
  Transmission Date: 20200122
  Serious: Yes (Death)
  Sender: FDA-Public Use
  Company Number: US-ROCHE-2410717

PATIENT
  Sex: Female
  Weight: 84.1 kg

DRUGS (2)
  1. PACLITAXEL. [Concomitant]
     Active Substance: PACLITAXEL
     Indication: BREAST CANCER
     Dosage: ONGOING NO
     Route: 042
     Dates: start: 201908, end: 201908
  2. HERCEPTIN [Suspect]
     Active Substance: TRASTUZUMAB
     Indication: BREAST CANCER FEMALE
     Dosage: (VIAL 150 MG) ?180 MG ONCE IN EVERY WEEK FOR 12 WEEKS.
     Route: 042
     Dates: start: 20190808, end: 20190815

REACTIONS (1)
  - Death [Fatal]
